FAERS Safety Report 4405589-4 (Version None)
Quarter: 2004Q3

REPORT INFORMATION
  Report Type: 
  Country: None (occurrence: None)
  Receive Date: 20040723
  Receipt Date: 20031009
  Transmission Date: 20050211
  Serious: No
  Sender: FDA-Public Use
  Company Number: US-GLAXOSMITHKLINE-A0429676A

PATIENT
  Age: 67 Year
  Sex: Male

DRUGS (4)
  1. AVANDIA [Suspect]
     Dosage: 4MG PER DAY
     Route: 048
     Dates: start: 20030919, end: 20030926
  2. NAPROSYN [Concomitant]
  3. OXYCONTIN [Concomitant]
  4. ACCUPRIL [Concomitant]

REACTIONS (3)
  - HYPERGLYCAEMIA [None]
  - MALAISE [None]
  - STOMACH DISCOMFORT [None]
